FAERS Safety Report 6270013-6 (Version None)
Quarter: 2009Q3

REPORT INFORMATION
  Report Type: 
  Country: None (occurrence: None)
  Receive Date: 20090716
  Receipt Date: 20090707
  Transmission Date: 20100115
  Serious: Yes (Other)
  Sender: FDA-Public Use
  Company Number: US-BAYER-200918433NA

PATIENT
  Age: 23 Year
  Sex: Female
  Weight: 64 kg

DRUGS (3)
  1. MIRENA [Suspect]
     Indication: CONTRACEPTION
     Dosage: CONTINUOUS
     Route: 015
     Dates: start: 20060512, end: 20090413
  2. MIRENA [Suspect]
     Dosage: CONTINUOUS
     Route: 015
     Dates: start: 20090413
  3. TYLENOL (CAPLET) [Concomitant]

REACTIONS (3)
  - ABDOMINAL PAIN LOWER [None]
  - ABORTION SPONTANEOUS [None]
  - PREGNANCY WITH CONTRACEPTIVE DEVICE [None]
